FAERS Safety Report 5525345-3 (Version None)
Quarter: 2007Q4

REPORT INFORMATION
  Report Type: 
  Country: None (occurrence: None)
  Receive Date: 20071120
  Receipt Date: 20061230
  Transmission Date: 20080405
  Serious: Yes (Hospitalization, Other)
  Sender: FDA-Public Use
  Company Number: 2007000810

PATIENT
  Sex: Male
  Weight: 77.1 kg

DRUGS (7)
  1. TIKOSYN [Suspect]
     Indication: ATRIAL FIBRILLATION
     Dosage: 0.25 MG (0.125 MG,BID)
     Dates: start: 20061001
  2. TRIAMTERENE AND HYDROCHLOROTHIAZIDE ^HARRIS^ (HYDROCHLOROTHIAZIDE, TRI [Concomitant]
  3. COUMADIN [Concomitant]
  4. PROBENECID [Concomitant]
  5. VITAMIN C (VITAMIN C) [Concomitant]
  6. ZINC (ZINC) [Concomitant]
  7. MAGNESIUM (MAGNESIUM) [Concomitant]

REACTIONS (5)
  - ASTHENIA [None]
  - ATRIAL FIBRILLATION [None]
  - DIZZINESS [None]
  - FEELING ABNORMAL [None]
  - HYPERTENSION [None]
